FAERS Safety Report 13668774 (Version 8)
Quarter: 2018Q4

REPORT INFORMATION
  Report Type: Spontaneous
  Country: JP (occurrence: JP)
  Receive Date: 20170620
  Receipt Date: 20181012
  Transmission Date: 20190204
  Serious: Yes (Other)
  Sender: FDA-Public Use
  Company Number: JP-009507513-1706JPN001479J

PATIENT
  Age: 69 Year
  Sex: Male
  Weight: 63 kg

DRUGS (6)
  1. POLAPREZINC [Concomitant]
     Active Substance: POLAPREZINC
     Indication: PROPHYLAXIS
     Dosage: 75 MG, BID
     Route: 048
  2. HERBAL NOS [Concomitant]
     Active Substance: HERBALS
     Indication: PROPHYLAXIS
     Dosage: 2.5 G, TID
     Route: 048
  3. MAGNESIUM OXIDE. [Concomitant]
     Active Substance: MAGNESIUM OXIDE
     Indication: ABDOMINAL PAIN
     Dosage: 330 MG, TID
     Route: 048
     Dates: start: 20170517, end: 20170808
  4. KEYTRUDA [Suspect]
     Active Substance: PEMBROLIZUMAB
     Indication: LUNG ADENOCARCINOMA
     Dosage: 200 MG, Q3W
     Route: 041
     Dates: start: 20170405, end: 20171213
  5. MOSAPRIDE CITRATE HYDRATE [Concomitant]
     Active Substance: MOSAPRIDE CITRATE DIHYDRATE
     Indication: PROPHYLAXIS
     Dosage: 5 MG, BID
     Route: 048
  6. EXCELASE [Concomitant]
     Active Substance: PANCRELIPASE
     Indication: PROPHYLAXIS
     Dosage: 1 DF, TID
     Route: 048

REACTIONS (7)
  - Productive cough [Recovered/Resolved]
  - Rhinorrhoea [Recovered/Resolved]
  - Decreased appetite [Recovered/Resolved]
  - Malaise [Recovered/Resolved]
  - Abdominal pain [Recovered/Resolved]
  - Hypothyroidism [Recovered/Resolved]
  - Pneumothorax [Recovered/Resolved]

NARRATIVE: CASE EVENT DATE: 20170506
